FAERS Safety Report 15183652 (Version 2)
Quarter: 2018Q3

REPORT INFORMATION
  Report Type: Spontaneous
  Country: US (occurrence: US)
  Receive Date: 20180723
  Receipt Date: 20180727
  Transmission Date: 20181010
  Serious: Yes (Hospitalization, Other)
  Sender: FDA-Public Use
  Company Number: US-PFIZER INC-2018294862

PATIENT
  Age: 18 Month
  Sex: Male
  Weight: 11 kg

DRUGS (2)
  1. AMINOPHYLLINE. [Suspect]
     Active Substance: AMINOPHYLLINE
     Indication: DYSPNOEA
  2. AMINOPHYLLINE. [Suspect]
     Active Substance: AMINOPHYLLINE
     Indication: BRONCHIOLITIS
     Dosage: UNK
     Route: 042

REACTIONS (5)
  - Respiratory arrest [Unknown]
  - Restlessness [Unknown]
  - Toxicity to various agents [Unknown]
  - Cyanosis [Unknown]
  - Albuminuria [Unknown]
